FAERS Safety Report 17750382 (Version 1)
Quarter: 2020Q2

REPORT INFORMATION
  Report Type: Spontaneous
  Country: US (occurrence: US)
  Receive Date: 20200506
  Receipt Date: 20200506
  Transmission Date: 20200714
  Serious: No
  Sender: FDA-Public Use
  Company Number: US-PFIZER INC-2020154846

PATIENT
  Age: 75 Year
  Sex: Female

DRUGS (1)
  1. LYRICA [Suspect]
     Active Substance: PREGABALIN
     Dosage: 125 MG, DAILY (50 MG CAPSULE (PREGOBLINE)- TAKE ONE IN MORNING; 75 MG CAPSULE (PREGOBLINE)- TAKE ONE

REACTIONS (1)
  - Visual impairment [Unknown]
